FAERS Safety Report 20189163 (Version 1)
Quarter: 2021Q4

REPORT INFORMATION
  Report Type: Spontaneous
  Country: US (occurrence: US)
  Receive Date: 20211215
  Receipt Date: 20211215
  Transmission Date: 20220303
  Serious: No
  Sender: FDA-Public Use
  Company Number: US-REGENERON PHARMACEUTICALS, INC.-2021-23009

PATIENT

DRUGS (2)
  1. EYLEA [Suspect]
     Active Substance: AFLIBERCEPT
     Indication: Diabetic retinal oedema
     Dosage: 2 MG, EVERY 4 TO 8 WEEKS
     Route: 031
     Dates: start: 201909, end: 20201218
  2. AVASTIN                            /01555201/ [Concomitant]
     Indication: Diabetic retinal oedema
     Dosage: UNK
     Route: 031
     Dates: start: 20210122

REACTIONS (1)
  - Drug ineffective [Unknown]
